FAERS Safety Report 10716230 (Version 1)
Quarter: 2015Q1

REPORT INFORMATION
  Report Type: Spontaneous
  Country: US (occurrence: None)
  Receive Date: 20150115
  Receipt Date: 20150115
  Transmission Date: 20150721
  Serious: No
  Sender: FDA-Public Use
  Company Number: None

PATIENT
  Age: 70 Year
  Sex: Female
  Weight: 63.05 kg

DRUGS (6)
  1. IBANDRONATE SODIUM TABLET GENERIC FOR BONIVA MANUFACTURED FOR: APOTEX CRP. WESTON, FLORIDA 33326 MANUFACTURED BY: APOTEX INC. TORONTO, ONTARIO CANADA M9L 1T9 [Suspect]
     Active Substance: IBANDRONATE SODIUM
     Indication: OSTEOPOROSIS
     Route: 048
     Dates: start: 20141124, end: 20141124
  2. ONE A DAY [Concomitant]
  3. MULTIVITAM/MULTIMINERAL SUPPLEMENT [Concomitant]
  4. ANASTROZOLE. [Concomitant]
     Active Substance: ANASTROZOLE
  5. LISINOPRIL. [Concomitant]
     Active Substance: LISINOPRIL
  6. ALLEGRA [Concomitant]
     Active Substance: FEXOFENADINE HYDROCHLORIDE

REACTIONS (9)
  - Myalgia [None]
  - Arthralgia [None]
  - Swelling [None]
  - Influenza like illness [None]
  - Abdominal distension [None]
  - Dyspepsia [None]
  - Back pain [None]
  - Bone pain [None]
  - Paraesthesia [None]

NARRATIVE: CASE EVENT DATE: 20141125
